FAERS Safety Report 9737333 (Version 1)
Quarter: 2013Q4

REPORT INFORMATION
  Report Type: Spontaneous
  Country: US (occurrence: US)
  Receive Date: 20131206
  Receipt Date: 20131206
  Transmission Date: 20140711
  Serious: No
  Sender: FDA-Public Use
  Company Number: US-BIOGENIDEC-2013BI098277

PATIENT
  Age: 62 Year
  Sex: Female

DRUGS (5)
  1. TECFIDERA [Suspect]
     Indication: MULTIPLE SCLEROSIS
     Route: 048
     Dates: start: 20130924, end: 20130930
  2. TECFIDERA [Suspect]
     Indication: MULTIPLE SCLEROSIS
     Route: 048
     Dates: start: 20131001
  3. XANAX [Concomitant]
  4. LUNESTA [Concomitant]
  5. MORPHINE [Concomitant]

REACTIONS (3)
  - Dizziness [Not Recovered/Not Resolved]
  - Fall [Recovered/Resolved]
  - Flushing [Not Recovered/Not Resolved]
